FAERS Safety Report 7374269-8 (Version None)
Quarter: 2011Q1

REPORT INFORMATION
  Report Type: 
  Country: None (occurrence: None)
  Receive Date: 20110317
  Receipt Date: 20110308
  Transmission Date: 20110831
  Serious: Yes (Other)
  Sender: FDA-Public Use
  Company Number: ABR_00026_2011

PATIENT
  Sex: Female

DRUGS (13)
  1. RANITIDINE [Concomitant]
  2. IRON DEXTRAN [Suspect]
     Indication: ANAEMIA
     Dosage: (DF)
     Dates: start: 20110101, end: 20110101
  3. TEMAZEPAM [Concomitant]
  4. HUMIRA [Suspect]
     Indication: CROHN'S DISEASE
     Dosage: (40 MG 1X/2 WEEKS, 40 MG/0.8 ML)
     Dates: start: 20101201
  5. HUMIRA [Suspect]
     Indication: CROHN'S DISEASE
     Dosage: (40 MG 1X/2 WEEKS, 40 MG/0.8 ML)
     Dates: start: 20101001
  6. SACCHARATED IRON OXIDE [Concomitant]
  7. AZATHIOPRINE [Concomitant]
  8. ERGOCALCIFEROL [Concomitant]
  9. PARACETAMOL [Concomitant]
  10. ERYTHROMYCIN [Suspect]
     Indication: SINUSITIS
     Dates: start: 20101201, end: 20101201
  11. METFORMIN [Concomitant]
  12. MELATONIN [Concomitant]
  13. LEVOFLOXACIN [Suspect]
     Indication: SINUSITIS
     Dosage: (DF)
     Dates: start: 20101201

REACTIONS (12)
  - DRUG INEFFECTIVE [None]
  - TREMOR [None]
  - DYSPNOEA [None]
  - SINUSITIS [None]
  - UNEVALUABLE EVENT [None]
  - BACK PAIN [None]
  - VOMITING [None]
  - SINUS HEADACHE [None]
  - ANAPHYLACTIC REACTION [None]
  - HEADACHE [None]
  - EAR INFECTION [None]
  - SKIN DISCOLOURATION [None]
